FAERS Safety Report 5609371-1 (Version None)
Quarter: 2008Q1

REPORT INFORMATION
  Report Type: 
  Country: None (occurrence: None)
  Receive Date: 20080131
  Receipt Date: 20080121
  Transmission Date: 20080703
  Serious: Yes (Death, Hospitalization)
  Sender: FDA-Public Use
  Company Number: IE-ROCHE-510624

PATIENT
  Age: 49 Year
  Sex: Female

DRUGS (2)
  1. XELODA [Suspect]
     Indication: COLON CANCER
     Dosage: DOSAGE REGIMEN: TWICE DAILY EVERY 14 DAYS
     Route: 065
     Dates: start: 20030411, end: 20030101
  2. IRON NOS [Concomitant]
     Dosage: IRON THERAPY

REACTIONS (2)
  - DIARRHOEA [None]
  - GASTROINTESTINAL MUCOSAL NECROSIS [None]
